FAERS Safety Report 17097720 (Version 1)
Quarter: 2019Q4

REPORT INFORMATION
  Report Type: Spontaneous
  Country: FR (occurrence: FR)
  Receive Date: 20191202
  Receipt Date: 20191202
  Transmission Date: 20200122
  Serious: Yes (Other)
  Sender: FDA-Public Use
  Company Number: NVSC2019FR047845

PATIENT
  Age: 1 Month
  Sex: Female

DRUGS (1)
  1. LAMISIL [Suspect]
     Active Substance: TERBINAFINE HYDROCHLORIDE
     Indication: FOETAL EXPOSURE DURING PREGNANCY
     Dosage: (MATERNAL DOSE: 250 MG/DAY)
     Route: 064
     Dates: start: 20190826, end: 20190831

REACTIONS (1)
  - Infant irritability [Unknown]

NARRATIVE: CASE EVENT DATE: 20190828
